FAERS Safety Report 24678241 (Version 1)
Quarter: 2024Q4

REPORT INFORMATION
  Report Type: Spontaneous
  Country: JP (occurrence: JP)
  Receive Date: 20241129
  Receipt Date: 20241129
  Transmission Date: 20250114
  Serious: Yes (Death, Hospitalization)
  Sender: STRIDES
  Company Number: JP-STRIDES ARCOLAB LIMITED-2024SP015342

PATIENT
  Age: 77 Year
  Sex: Male

DRUGS (1)
  1. PREDNISOLONE [Suspect]
     Active Substance: PREDNISOLONE
     Indication: Dermatomyositis
     Dosage: 60 MILLIGRAM, QD
     Route: 065

REACTIONS (5)
  - Bronchopulmonary aspergillosis [Fatal]
  - Acute respiratory distress syndrome [Fatal]
  - Aspergillus infection [Fatal]
  - Respiratory failure [Fatal]
  - Drug ineffective [Unknown]
